FAERS Safety Report 21695798 (Version 2)
Quarter: 2022Q4

REPORT INFORMATION
  Report Type: Report from Study
  Country: US (occurrence: US)
  Receive Date: 20221207
  Receipt Date: 20221208
  Transmission Date: 20230113
  Serious: Yes (Death, Hospitalization)
  Sender: FDA-Public Use
  Company Number: US-ABBVIE-4226794

PATIENT
  Sex: Male

DRUGS (1)
  1. VENCLEXTA [Suspect]
     Active Substance: VENETOCLAX
     Indication: Lymphocytic leukaemia
     Dosage: FREQUENCY TEXT: 1 TABLET ON DAY1, 2 TABLETS ON DAY2, 3 TABLETS ON DAY3, 4 TABLETS ONCE A DAY THER...
     Route: 048

REACTIONS (1)
  - Infection [Fatal]
